FAERS Safety Report 6102894-0 (Version None)
Quarter: 2009Q1

REPORT INFORMATION
  Report Type: 
  Country: None (occurrence: None)
  Receive Date: 20090303
  Receipt Date: 20090303
  Transmission Date: 20090719
  Serious: Yes (Other)
  Sender: FDA-Public Use
  Company Number: None

PATIENT
  Sex: Female
  Weight: 99.7913 kg

DRUGS (2)
  1. LEVAQUIN [Suspect]
     Indication: EYE INFECTION
  2. CIPROFLOXIN HYDROCHLORIDE [Concomitant]

REACTIONS (9)
  - ARTHRITIS [None]
  - ARTHROPATHY [None]
  - DYSSTASIA [None]
  - EYE INFECTION [None]
  - GAIT DISTURBANCE [None]
  - HYPOTENSION [None]
  - MUSCULOSKELETAL STIFFNESS [None]
  - MYALGIA [None]
  - OEDEMA PERIPHERAL [None]
